FAERS Safety Report 5814535-8 (Version None)
Quarter: 2008Q3

REPORT INFORMATION
  Report Type: 
  Country: None (occurrence: None)
  Receive Date: 20080718
  Receipt Date: 20070713
  Transmission Date: 20090109
  Serious: No
  Sender: FDA-Public Use
  Company Number: US-KINGPHARMUSA00001-K200700892

PATIENT

DRUGS (3)
  1. LEVOXYL [Suspect]
     Dosage: UNK, QD
     Route: 048
     Dates: start: 20050101
  2. ^SEVERAL^ UNSPECIFIED MEDICATIONS [Concomitant]
  3. INSULIN [Concomitant]
     Dosage: SMALL DOSES

REACTIONS (2)
  - NAIL DISORDER [None]
  - SKIN EXFOLIATION [None]
